FAERS Safety Report 13625477 (Version 1)
Quarter: 2017Q2

REPORT INFORMATION
  Report Type: Spontaneous
  Country: JP (occurrence: JP)
  Receive Date: 20170608
  Receipt Date: 20170608
  Transmission Date: 20170830
  Serious: Yes (Death, Hospitalization)
  Sender: FDA-Public Use
  Company Number: JP-ASTRAZENECA-2017SE14722

PATIENT
  Age: 700 Month
  Sex: Female
  Weight: 42 kg

DRUGS (8)
  1. PEROSPIRONE HYDROCHLORIDE HYDRATE [Suspect]
     Active Substance: PEROSPIRONE HYDROCHLORIDE HYDRATE
     Indication: SCHIZOPHRENIA
     Route: 048
  2. WYPAX [Suspect]
     Active Substance: LORAZEPAM
     Indication: SCHIZOPHRENIA
     Route: 048
  3. RINDERON V [Concomitant]
     Active Substance: BETAMETHASONE VALERATE
     Indication: METASTASES TO CENTRAL NERVOUS SYSTEM
     Route: 048
     Dates: start: 20140725
  4. TEPRENONE [Concomitant]
     Active Substance: TEPRENONE
     Indication: GASTRITIS
     Route: 048
     Dates: start: 20140725
  5. HALCION [Suspect]
     Active Substance: TRIAZOLAM
     Indication: SCHIZOPHRENIA
     Route: 048
  6. MEILAX [Suspect]
     Active Substance: ETHYL LOFLAZEPATE
     Indication: SCHIZOPHRENIA
     Route: 048
  7. MAGMITT [Concomitant]
     Active Substance: MAGNESIUM OXIDE
     Indication: CONSTIPATION
     Route: 048
     Dates: start: 20140705
  8. IRESSA [Suspect]
     Active Substance: GEFITINIB
     Indication: ADENOSQUAMOUS CELL LUNG CANCER
     Route: 048
     Dates: start: 20140804, end: 20141016

REACTIONS (2)
  - Stomatitis [Recovering/Resolving]
  - Parkinsonism [Unknown]

NARRATIVE: CASE EVENT DATE: 20140922
